FAERS Safety Report 8759829 (Version 1)
Quarter: 2012Q4

REPORT INFORMATION
  Report Type: Report from Study
  Country: US (occurrence: US)
  Receive Date: 20120829
  Receipt Date: 20120829
  Transmission Date: 20130627
  Serious: Yes (Hospitalization)
  Sender: FDA-Public Use
  Company Number: US-CELGENEUS-163-21880-12082394

PATIENT
  Age: 66 Year
  Sex: Male
  Weight: 142.5 kg

DRUGS (7)
  1. REVLIMID [Suspect]
     Indication: PROSTATE CANCER
     Dosage: 25 Milligram
     Route: 048
     Dates: start: 20120703
  2. REVLIMID [Suspect]
     Dosage: 25 Milligram
     Route: 048
     Dates: start: 20120723, end: 20120730
  3. DOCETAXEL [Suspect]
     Indication: PROSTATE CANCER
     Dosage: 75 milligram/sq. meter
     Route: 041
     Dates: start: 20120703, end: 20120703
  4. DOCETAXEL [Suspect]
     Dosage: 75 milligram/sq. meter
     Route: 041
     Dates: start: 20120723, end: 20120723
  5. BEVACIZUMAB [Suspect]
     Indication: PROSTATE CANCER
     Dosage: 15 milligram/kilogram
     Route: 041
     Dates: start: 20120703, end: 20120703
  6. BEVACIZUMAB [Suspect]
     Dosage: 15 milligram/kilogram
     Route: 041
     Dates: start: 20120723, end: 20120723
  7. PREDNISONE [Concomitant]
     Indication: DRUG USE FOR UNKNOWN INDICATION
     Dosage: 10 Milligram
     Route: 048
     Dates: start: 20120703, end: 20120730

REACTIONS (4)
  - Ventricular arrhythmia [Not Recovered/Not Resolved]
  - Blood bilirubin increased [Not Recovered/Not Resolved]
  - Hypotension [Not Recovered/Not Resolved]
  - Syncope [Not Recovered/Not Resolved]
